FAERS Safety Report 10616879 (Version 4)
Quarter: 2023Q1

REPORT INFORMATION
  Report Type: Report from Study
  Country: CA (occurrence: CA)
  Receive Date: 20141201
  Receipt Date: 20230130
  Transmission Date: 20230417
  Serious: Yes (Other)
  Sender: FDA-Public Use
  Company Number: PHHY2014CA058390

PATIENT
  Age: 32 Year
  Sex: Male

DRUGS (8)
  1. SANDOSTATIN LAR DEPOT [Suspect]
     Active Substance: OCTREOTIDE ACETATE
     Indication: Pancreatic neuroendocrine tumour
     Dosage: 30 MG,Q4W (EVERY 4 WEEKS)
     Route: 030
     Dates: start: 20140508
  2. SANDOSTATIN LAR DEPOT [Suspect]
     Active Substance: OCTREOTIDE ACETATE
  3. SANDOSTATIN LAR DEPOT [Suspect]
     Active Substance: OCTREOTIDE ACETATE
  4. SANDOSTATIN [Suspect]
     Active Substance: OCTREOTIDE ACETATE
     Indication: Pancreatic neuroendocrine tumour
     Dosage: UNK UG, ONCE/SINGLE (TEST DOSE)
     Route: 058
     Dates: start: 20140424, end: 20140424
  5. SANDOSTATIN [Suspect]
     Active Substance: OCTREOTIDE ACETATE
  6. SANDOSTATIN [Suspect]
     Active Substance: OCTREOTIDE ACETATE
  7. INSULIN NOS [Concomitant]
     Active Substance: INSULIN NOS
     Indication: Type 1 diabetes mellitus
     Dosage: UNK
     Route: 065
  8. VITAMIN B12 [Concomitant]
     Active Substance: CYANOCOBALAMIN
     Indication: Product used for unknown indication
     Route: 030

REACTIONS (25)
  - Pneumonia [Not Recovered/Not Resolved]
  - Pyrexia [Recovered/Resolved]
  - Secretion discharge [Not Recovered/Not Resolved]
  - Wheezing [Recovering/Resolving]
  - Cough [Recovering/Resolving]
  - Pancreatic neuroendocrine tumour [Unknown]
  - Malignant neoplasm progression [Unknown]
  - Neck mass [Unknown]
  - Viral infection [Recovering/Resolving]
  - Blood ketone body increased [Recovered/Resolved]
  - Malaise [Unknown]
  - Influenza like illness [Unknown]
  - Pyrexia [Unknown]
  - Mass [Unknown]
  - Nasopharyngitis [Unknown]
  - Nasal congestion [Unknown]
  - Cough [Unknown]
  - Stress [Unknown]
  - Diarrhoea [Unknown]
  - Vomiting [Unknown]
  - Blood pressure increased [Unknown]
  - Grimacing [Unknown]
  - Heart rate increased [Unknown]
  - Abdominal discomfort [Unknown]
  - Abdominal pain [Unknown]

NARRATIVE: CASE EVENT DATE: 20140101
